FAERS Safety Report 6393384-9 (Version None)
Quarter: 2009Q4

REPORT INFORMATION
  Report Type: 
  Country: None (occurrence: None)
  Receive Date: 20091008
  Receipt Date: 20090924
  Transmission Date: 20100525
  Serious: Yes (Hospitalization)
  Sender: FDA-Public Use
  Company Number: US-RB-021240-09

PATIENT
  Age: 65 Year
  Sex: Female

DRUGS (1)
  1. MUCINEX [Suspect]
     Route: 048

REACTIONS (3)
  - DRUG ABUSE [None]
  - FLUID RETENTION [None]
  - SWELLING [None]
